FAERS Safety Report 16346480 (Version 1)
Quarter: 2019Q2

REPORT INFORMATION
  Report Type: Spontaneous
  Country: FR (occurrence: FR)
  Receive Date: 20190523
  Receipt Date: 20190523
  Transmission Date: 20190711
  Serious: Yes (Hospitalization)
  Sender: FDA-Public Use
  Company Number: FR-TEVA-2019-FR-1052458

PATIENT
  Age: 17 Year
  Sex: Male
  Weight: 61 kg

DRUGS (5)
  1. CLOPIXOL ACTION PROLONGEE 200 MG/1 ML, SOLUTION INJECTABLE I.M. [Suspect]
     Active Substance: ZUCLOPENTHIXOL
     Indication: PSYCHOTIC DISORDER
     Route: 030
     Dates: start: 20190412
  2. CLOZAPINE. [Suspect]
     Active Substance: CLOZAPINE
     Indication: PSYCHOTIC DISORDER
     Dosage: PROGRESSIVE DOSAGE (UP TO 200MG/DAY)
     Route: 048
     Dates: start: 20190308
  3. CLOPIXOL 2 POUR CENT, SOLUTION BUVABLE EN GOUTTES [Suspect]
     Active Substance: ZUCLOPENTHIXOL
     Indication: PSYCHOTIC DISORDER
     Dosage: POSOLOGIE DEGRESSIVE
     Route: 048
     Dates: start: 20190214
  4. LEPTICUR 10 MG, COMPRIM? [Suspect]
     Active Substance: TROPATEPINE HYDROCHLORIDE
     Indication: PARKINSONISM
     Route: 048
     Dates: start: 20190320
  5. LYSANXIA 15 MG/ML, SOLUTION BUVABLE EN GOUTTES [Suspect]
     Active Substance: PRAZEPAM
     Indication: PSYCHOTIC DISORDER
     Dosage: POSOLOGIE DEGRESSIVE
     Route: 048
     Dates: start: 20190320

REACTIONS (2)
  - Mydriasis [Not Recovered/Not Resolved]
  - Vision blurred [Not Recovered/Not Resolved]
